FAERS Safety Report 9987724 (Version 1)
Quarter: 2014Q1

REPORT INFORMATION
  Report Type: Spontaneous
  Country: US (occurrence: US)
  Receive Date: 20140307
  Receipt Date: 20140307
  Transmission Date: 20141002
  Serious: No
  Sender: FDA-Public Use
  Company Number: US-AMGEN-USASP2014013461

PATIENT
  Age: 44 Year
  Sex: Male

DRUGS (5)
  1. ENBREL [Suspect]
     Indication: PSORIASIS
     Dosage: UNK UNK, 2 TIMES/WK
     Route: 065
     Dates: start: 20140116
  2. ENBREL [Suspect]
     Indication: PSORIATIC ARTHROPATHY
  3. NAPROXEN                           /00256202/ [Concomitant]
     Dosage: 500 MG, BID
  4. TRAMADOL HCL [Concomitant]
     Dosage: UNK, EVERY 6 HOURS
  5. LISINOPRIL                         /00894002/ [Concomitant]
     Indication: HYPERTENSION
     Dosage: UNK

REACTIONS (2)
  - Cough [Not Recovered/Not Resolved]
  - Secretion discharge [Not Recovered/Not Resolved]
